FAERS Safety Report 25541526 (Version 1)
Quarter: 2025Q3

REPORT INFORMATION
  Report Type: Report from Study
  Country: US (occurrence: US)
  Receive Date: 20250711
  Receipt Date: 20250711
  Transmission Date: 20251020
  Serious: Yes (Other)
  Sender: ACADIA PHARMACEUTICALS
  Company Number: US-ACADIA PHARMACEUTICALS INC.-ACA-2025-PIM-008021

PATIENT
  Sex: Male

DRUGS (18)
  1. NUPLAZID [Suspect]
     Active Substance: PIMAVANSERIN TARTRATE
     Indication: Delusional disorder, unspecified type
     Dosage: 34 MILLIGRAM, QD (AT BEDTIME)
     Route: 048
  2. NUPLAZID [Suspect]
     Active Substance: PIMAVANSERIN TARTRATE
     Indication: Hallucination
  3. NUPLAZID [Suspect]
     Active Substance: PIMAVANSERIN TARTRATE
     Indication: Psychotic disorder
  4. ATORVASTATIN [Concomitant]
     Active Substance: ATORVASTATIN
  5. FLONASE [Concomitant]
     Active Substance: FLUTICASONE PROPIONATE
  6. ENTACAPONE [Concomitant]
     Active Substance: ENTACAPONE
  7. VITAMIN B COMPLEX [Concomitant]
     Active Substance: CYANOCOBALAMIN\DEXPANTHENOL\NIACINAMIDE\PYRIDOXINE HYDROCHLORIDE\RIBOFLAVIN 5^-PHOSPHATE SODIUM\THIA
  8. DOCUSATE [Concomitant]
     Active Substance: DOCUSATE
  9. ASPIRIN [Concomitant]
     Active Substance: ASPIRIN
  10. AMOXICILLIN [Concomitant]
     Active Substance: AMOXICILLIN
  11. VITAMIN D2 [Concomitant]
     Active Substance: ERGOCALCIFEROL
  12. MELOXICAM [Concomitant]
     Active Substance: MELOXICAM
  13. RIVASTIGMINE [Concomitant]
     Active Substance: RIVASTIGMINE
  14. CARBIDOPA\LEVODOPA [Concomitant]
     Active Substance: CARBIDOPA\LEVODOPA
  15. MUPIROCIN [Concomitant]
     Active Substance: MUPIROCIN
  16. OMEPRAZOLE [Concomitant]
     Active Substance: OMEPRAZOLE
  17. FOLIC ACID [Concomitant]
     Active Substance: FOLIC ACID
  18. LISINOPRIL [Concomitant]
     Active Substance: LISINOPRIL

REACTIONS (3)
  - Hallucination [Unknown]
  - Drug ineffective [Unknown]
  - Product use in unapproved indication [Unknown]
